FAERS Safety Report 8597708-3 (Version None)
Quarter: 2012Q3

REPORT INFORMATION
  Report Type: 
  Country: None (occurrence: None)
  Receive Date: 20120816
  Receipt Date: 20120813
  Transmission Date: 20120928
  Serious: Yes (Other)
  Sender: FDA-Public Use
  Company Number: AU-PFIZER INC-2012197445

PATIENT
  Sex: Female

DRUGS (3)
  1. XANAX [Suspect]
     Dosage: 0.5 MG, 2X/DAY
  2. XANAX [Suspect]
     Dosage: 1 MG, 2X/DAY
  3. EFFEXOR [Concomitant]
     Dosage: UNK

REACTIONS (4)
  - DEPRESSION [None]
  - MANIA [None]
  - ABNORMAL BEHAVIOUR [None]
  - WITHDRAWAL SYNDROME [None]
